FAERS Safety Report 7384055-0 (Version None)
Quarter: 2011Q1

REPORT INFORMATION
  Report Type: 
  Country: None (occurrence: None)
  Receive Date: 20110330
  Receipt Date: 20110324
  Transmission Date: 20110831
  Serious: Yes (Other)
  Sender: FDA-Public Use
  Company Number: GXKR2011DE01329

PATIENT
  Sex: Female
  Weight: 2.97 kg

DRUGS (5)
  1. CITALOPRAM HYDROBROMIDE [Suspect]
     Indication: ANXIETY DISORDER
     Dosage: 20 MG, QD
     Route: 064
     Dates: start: 20100119, end: 20101107
  2. FOLIC ACID [Concomitant]
     Dosage: 0.4 MG, QD
     Dates: end: 20100712
  3. LEVOTHYROXINE SODIUM [Concomitant]
     Indication: AUTOIMMUNE THYROIDITIS
     Dosage: 50 UG, QD
     Route: 064
     Dates: end: 20101107
  4. CITALOPRAM HYDROBROMIDE [Suspect]
     Dosage: 10 MG, QD
     Route: 064
     Dates: start: 20100119, end: 20101107
  5. FOLIC ACID [Concomitant]
     Dosage: 0.8 MG, QD
     Route: 064
     Dates: end: 20100712

REACTIONS (1)
  - SMALL FOR DATES BABY [None]
